FAERS Safety Report 17949896 (Version 4)
Quarter: 2020Q3

REPORT INFORMATION
  Report Type: Report from Study
  Country: US (occurrence: US)
  Receive Date: 20200625
  Receipt Date: 20200724
  Transmission Date: 20201103
  Serious: Yes (Hospitalization)
  Sender: FDA-Public Use
  Company Number: US-ACTELION-A-NJ2020-206452

PATIENT
  Age: 74 Year
  Sex: Female
  Weight: 95.24 kg

DRUGS (6)
  1. ORENITRAM [Suspect]
     Active Substance: TREPROSTINIL
     Dosage: 0.625 MG, TID
     Route: 065
  2. ELIQUIS [Concomitant]
     Active Substance: APIXABAN
  3. VENTAVIS [Suspect]
     Active Substance: ILOPROST
     Indication: PULMONARY ARTERIAL HYPERTENSION
     Route: 055
  4. ADEMPAS [Concomitant]
     Active Substance: RIOCIGUAT
  5. OPSUMIT [Suspect]
     Active Substance: MACITENTAN
     Indication: PULMONARY ARTERIAL HYPERTENSION
     Dosage: 10 MG, QD
     Route: 048
  6. ORENITRAM [Suspect]
     Active Substance: TREPROSTINIL
     Indication: PRODUCT USED FOR UNKNOWN INDICATION
     Dosage: 0.5 MG (CUT 1 MG TABLET IN HALF)
     Route: 048

REACTIONS (6)
  - Pain [Unknown]
  - Fluid retention [Unknown]
  - Dyspnoea [Unknown]
  - Emergency care [Unknown]
  - Pulmonary oedema [Unknown]
  - Pain in jaw [Unknown]

NARRATIVE: CASE EVENT DATE: 20200617
